FAERS Safety Report 9011541 (Version 1)
Quarter: 2013Q1

REPORT INFORMATION
  Report Type: Spontaneous
  Country: US (occurrence: US)
  Receive Date: 20130108
  Receipt Date: 20130108
  Transmission Date: 20140127
  Serious: Yes (Other)
  Sender: FDA-Public Use
  Company Number: US-COVIDIEN/TYCO HEALTHCARE/MALLINCKRODT-T201300006

PATIENT
  Age: 6 Year
  Sex: Male

DRUGS (2)
  1. OPTIRAY [Suspect]
     Indication: ARTERIOGRAM CORONARY
     Dosage: UNK
     Dates: start: 20121212, end: 20121212
  2. SALINE                             /00075401/ [Concomitant]
     Indication: ARTERIOGRAM CORONARY
     Dosage: UNK
     Route: 042
     Dates: start: 20121212, end: 20121212

REACTIONS (2)
  - Air embolism [Recovered/Resolved]
  - Drug administration error [Recovered/Resolved]
